FAERS Safety Report 17016477 (Version 1)
Quarter: 2019Q4

REPORT INFORMATION
  Report Type: Spontaneous
  Country: US (occurrence: US)
  Receive Date: 20191004
  Receipt Date: 20191004
  Transmission Date: 20200122
  Serious: Yes (Hospitalization)
  Sender: FDA-Public Use
  Company Number: None

PATIENT
  Age: 59 Year
  Sex: Female
  Weight: 87.8 kg

DRUGS (1)
  1. ASPIRIN. [Suspect]
     Active Substance: ASPIRIN
     Dates: end: 20190515

REACTIONS (5)
  - Vomiting [None]
  - Lipase increased [None]
  - Blood pressure systolic increased [None]
  - Pancreatitis [None]
  - Abdominal pain [None]

NARRATIVE: CASE EVENT DATE: 20190515
